FAERS Safety Report 4946066-1 (Version None)
Quarter: 2006Q1

REPORT INFORMATION
  Report Type: 
  Country: None (occurrence: None)
  Receive Date: 20060118
  Receipt Date: 20050913
  Transmission Date: 20060701
  Serious: Yes (Life-Threatening, Hospitalization)
  Sender: FDA-Public Use
  Company Number: REM_00148_2005

PATIENT
  Age: 17 Year
  Sex: Female
  Weight: 70.3 kg

DRUGS (8)
  1. REMODULIN [Suspect]
     Indication: PULMONARY HYPERTENSION
     Dosage: 86 NG/KG/MIN CONTINUOUS IV
     Route: 042
     Dates: start: 19990501
  2. SILDENAFIL [Concomitant]
  3. LASIX [Concomitant]
  4. LASIX [Concomitant]
  5. NIFEDIPINE [Concomitant]
  6. LEXAPRO [Concomitant]
  7. OXYGEN [Concomitant]
  8. COUMADIN [Concomitant]

REACTIONS (1)
  - PULMONARY HYPERTENSION [None]
